FAERS Safety Report 4997814-6 (Version None)
Quarter: 2006Q2

REPORT INFORMATION
  Report Type: 
  Country: None (occurrence: None)
  Receive Date: 20060510
  Receipt Date: 20060314
  Transmission Date: 20061013
  Serious: No
  Sender: FDA-Public Use
  Company Number: US-BRISTOL-MYERS SQUIBB COMPANY-13314539

PATIENT
  Age: 42 Year
  Sex: Female
  Weight: 94 kg

DRUGS (4)
  1. MONOPRIL [Suspect]
  2. BYETTA [Suspect]
     Indication: DIABETES MELLITUS NON-INSULIN-DEPENDENT
     Dosage: 5 MCG BID DEC-2005 - JAN-2006, 10 MCG BID SINCE JAN-2006
     Route: 058
     Dates: start: 20051201
  3. AMARYL [Concomitant]
     Dates: start: 20040101
  4. GLUCOPHAGE [Concomitant]
     Dates: start: 20040101

REACTIONS (3)
  - EYE SWELLING [None]
  - PRURITUS GENERALISED [None]
  - SWELLING FACE [None]
